FAERS Safety Report 6972760-7 (Version None)
Quarter: 2010Q3

REPORT INFORMATION
  Report Type: 
  Country: None (occurrence: None)
  Receive Date: 20100909
  Receipt Date: 20100901
  Transmission Date: 20110219
  Serious: Yes (Disabling)
  Sender: FDA-Public Use
  Company Number: DE-SANOFI-AVENTIS-2010SA045692

PATIENT
  Age: 80 Year
  Sex: Female
  Weight: 80 kg

DRUGS (8)
  1. MULTAQ [Suspect]
     Indication: ATRIAL FIBRILLATION
     Route: 048
     Dates: start: 20100505, end: 20100526
  2. METOPROLOL TARTRATE [Suspect]
     Indication: ATRIAL FIBRILLATION
     Route: 048
     Dates: start: 20050101, end: 20100504
  3. METOPROLOL TARTRATE [Suspect]
     Route: 048
     Dates: start: 20100505
  4. MARCUMAR [Concomitant]
     Indication: ATRIAL FIBRILLATION
     Route: 048
  5. TORASEMIDE [Concomitant]
     Dosage: DAILY DOSE: 1/2 TABLET
     Route: 048
  6. RAMIPRIL [Concomitant]
     Route: 048
  7. EZETIMIBE [Concomitant]
     Indication: PRODUCT USED FOR UNKNOWN INDICATION
     Route: 048
  8. PANTOPRAZOLE [Concomitant]
     Indication: PRODUCT USED FOR UNKNOWN INDICATION
     Route: 048

REACTIONS (3)
  - CARDIAC FAILURE [None]
  - DYSPNOEA [None]
  - PULMONARY OEDEMA [None]
